FAERS Safety Report 8416105-4 (Version None)
Quarter: 2012Q2

REPORT INFORMATION
  Report Type: 
  Country: None (occurrence: None)
  Receive Date: 20120606
  Receipt Date: 20120604
  Transmission Date: 20120825
  Serious: Yes (Hospitalization)
  Sender: FDA-Public Use
  Company Number: US-B.I. PHARMACEUTICALS,INC./RIDGEFIELD-2012-BP-12965BP

PATIENT
  Sex: Female

DRUGS (17)
  1. SPIRIVA [Suspect]
     Indication: CHRONIC OBSTRUCTIVE PULMONARY DISEASE
     Dosage: 18 MCG
     Route: 055
     Dates: start: 20120504, end: 20120518
  2. GLIPIZIDE [Concomitant]
     Indication: DIABETES MELLITUS
     Dosage: 5 MG
     Route: 048
  3. SPIRIVA [Suspect]
     Route: 055
  4. NEXIUM [Concomitant]
     Indication: GASTROOESOPHAGEAL REFLUX DISEASE
     Dosage: 20 MG
     Route: 048
  5. ADVAIR DISKUS 100/50 [Concomitant]
     Indication: ASTHMA
     Route: 055
  6. DILTIAZEM [Concomitant]
     Indication: HYPERTENSION
     Dosage: 240 MG
     Route: 048
  7. GABAPENTIN [Concomitant]
     Indication: MUSCLE SPASMS
     Dosage: 600 MG
     Route: 048
  8. HYDROXYZINE [Concomitant]
     Indication: HYPERSENSITIVITY
     Dosage: 25 MG
     Route: 048
  9. COMBIVENT [Concomitant]
     Indication: HYPERSENSITIVITY
     Dosage: 8 PUF
     Route: 055
  10. MULTI-VITAMIN [Concomitant]
     Indication: VITAMIN SUPPLEMENTATION
  11. COUMADIN [Concomitant]
     Indication: ARRHYTHMIA
     Route: 048
  12. ASACOL [Concomitant]
     Indication: COLITIS ULCERATIVE
     Dosage: 800 MG
     Route: 048
  13. SIMVASTATIN [Concomitant]
     Indication: BLOOD CHOLESTEROL INCREASED
     Dosage: 20 MG
     Route: 048
  14. TRAMADOL HCL [Concomitant]
     Indication: PAIN
  15. SINGULAIR [Concomitant]
     Indication: HYPERSENSITIVITY
     Dosage: 10 MG
     Route: 048
  16. COUMADIN [Concomitant]
     Dosage: 10.5 MG
     Route: 048
  17. FLUTICASONE FUROATE [Concomitant]
     Indication: HYPERSENSITIVITY
     Route: 045

REACTIONS (1)
  - BRONCHITIS [None]
